FAERS Safety Report 17224988 (Version 1)
Quarter: 2019Q4

REPORT INFORMATION
  Report Type: Spontaneous
  Country: US (occurrence: US)
  Receive Date: 20191209
  Receipt Date: 20191209
  Transmission Date: 20200122
  Serious: No
  Sender: FDA-Public Use
  Company Number: None

PATIENT
  Age: 76 Year
  Sex: Male
  Weight: 79 kg

DRUGS (1)
  1. SACUBITRIL/VALSARTAN (SACUBITRIL 97MG/VALSARTAN 103MG TAB ) [Suspect]
     Active Substance: SACUBITRIL\VALSARTAN
     Indication: CARDIAC FAILURE CONGESTIVE
     Dosage: ?          OTHER DOSE:1 TAB;?
     Route: 048
     Dates: start: 20190506, end: 20191023

REACTIONS (3)
  - Blood creatinine increased [None]
  - Hyperkalaemia [None]
  - Blood urea increased [None]

NARRATIVE: CASE EVENT DATE: 20191023
